FAERS Safety Report 12201414 (Version 2)
Quarter: 2017Q1

REPORT INFORMATION
  Report Type: Spontaneous
  Country: US (occurrence: US)
  Receive Date: 20160322
  Receipt Date: 20170320
  Transmission Date: 20170428
  Serious: No
  Sender: FDA-Public Use
  Company Number: US-SA-2015SA030812

PATIENT
  Age: 88 Year
  Sex: Female

DRUGS (2)
  1. NASACORT ALLERGY 24HR [Suspect]
     Active Substance: TRIAMCINOLONE ACETONIDE
     Indication: MIDDLE EAR EFFUSION
     Dosage: DOSE:120 SPRAY
     Dates: end: 20150310
  2. NASACORT ALLERGY 24HR [Suspect]
     Active Substance: TRIAMCINOLONE ACETONIDE
     Indication: MIDDLE EAR EFFUSION
     Dosage: DOSE:120 SPRAY
     Dates: end: 20150310

REACTIONS (3)
  - Therapeutic response decreased [Unknown]
  - Product use issue [Unknown]
  - Epistaxis [Unknown]
